FAERS Safety Report 7472860-1 (Version None)
Quarter: 2011Q1

REPORT INFORMATION
  Report Type: 
  Country: None (occurrence: None)
  Receive Date: 20110302
  Receipt Date: 20100806
  Transmission Date: 20110831
  Serious: Yes (Hospitalization)
  Sender: FDA-Public Use
  Company Number: 163-21880-10050382

PATIENT
  Age: 75 Year
  Sex: Male

DRUGS (3)
  1. PROCRIT [Concomitant]
  2. REVLIMID [Suspect]
     Indication: MULTIPLE MYELOMA
     Dosage: 10 MG, QD DAYS 1-21 OF 28 DAYS, PO
     Route: 048
     Dates: start: 20090401, end: 20091101
  3. DEXAMETHASONE [Concomitant]

REACTIONS (5)
  - NEPHROTIC SYNDROME [None]
  - AGEUSIA [None]
  - DRUG INEFFECTIVE [None]
  - NEUROPATHY PERIPHERAL [None]
  - DECREASED APPETITE [None]
